FAERS Safety Report 21486472 (Version 1)
Quarter: 2022Q4

REPORT INFORMATION
  Report Type: Spontaneous
  Country: GB (occurrence: GB)
  Receive Date: 20221020
  Receipt Date: 20221020
  Transmission Date: 20230113
  Serious: Yes (Other)
  Sender: FDA-Public Use
  Company Number: GB-BAUSCH-BL-2022-023848

PATIENT
  Sex: Female
  Weight: 39 kg

DRUGS (1)
  1. PLENVU [Suspect]
     Active Substance: ASCORBIC ACID\POLYETHYLENE GLYCOL 3350\POTASSIUM CHLORIDE\SODIUM ASCORBATE\SODIUM CHLORIDE\SODIUM SU
     Indication: Gastrointestinal disorder
     Dosage: 3 SACHETS AS PRESCRIBED TAKEN OVER ABOUT 4 HOURS AS INSTRUCTED IN ACCOMPANYING LEAFLET
     Route: 065
     Dates: start: 20221006, end: 20221006

REACTIONS (5)
  - Diarrhoea [Recovered/Resolved with Sequelae]
  - Obstructive defaecation [Unknown]
  - Abdominal discomfort [Unknown]
  - Nausea [Unknown]
  - Off label use [Unknown]

NARRATIVE: CASE EVENT DATE: 20221006
